FAERS Safety Report 10135864 (Version 1)
Quarter: 2014Q2

REPORT INFORMATION
  Report Type: Spontaneous
  Country: IT (occurrence: IT)
  Receive Date: 20140428
  Receipt Date: 20140428
  Transmission Date: 20141212
  Serious: Yes (Other)
  Sender: FDA-Public Use
  Company Number: PHHY2014IT049114

PATIENT
  Age: 74 Year
  Sex: Female

DRUGS (4)
  1. HYDROCHLOROTHIAZIDE,VALSARTAN [Suspect]
     Dosage: UNK MG OF HCTZ/182.5 OF VALS(AS REPORTED), DAILY
     Route: 048
     Dates: start: 20140101, end: 20140311
  2. FUROSEMIDE [Suspect]
     Dosage: 1 DF, DAILY
     Route: 048
     Dates: start: 20140101, end: 20140311
  3. EUTIROX [Concomitant]
     Dosage: UNK UKN, UNK
  4. METFORMIN [Concomitant]
     Dosage: UNK UKN, UNK

REACTIONS (2)
  - Syncope [Recovering/Resolving]
  - Hypokalaemia [Recovering/Resolving]
